FAERS Safety Report 5697517-9 (Version None)
Quarter: 2008Q2

REPORT INFORMATION
  Report Type: 
  Country: None (occurrence: None)
  Receive Date: 20080408
  Receipt Date: 20080327
  Transmission Date: 20081010
  Serious: Yes (Death, Hospitalization)
  Sender: FDA-Public Use
  Company Number: FR-AVENTIS-200811140FR

PATIENT
  Age: 59 Year
  Sex: Male

DRUGS (12)
  1. LOVENOX [Suspect]
     Indication: DRUG USE FOR UNKNOWN INDICATION
     Route: 058
     Dates: start: 20071122, end: 20071210
  2. LASILIX RETARD [Suspect]
     Indication: DRUG USE FOR UNKNOWN INDICATION
     Route: 048
     Dates: end: 20071210
  3. VANCOMYCIN HCL [Suspect]
     Indication: OSTEITIS
     Route: 042
     Dates: start: 20071207, end: 20071210
  4. NEXIUM [Suspect]
     Indication: DRUG USE FOR UNKNOWN INDICATION
     Route: 048
     Dates: start: 20071122, end: 20071210
  5. OSTRAM-VIT.D3 [Suspect]
     Route: 048
     Dates: start: 20071122, end: 20071211
  6. SOLUTIONS FOR PARENTERAL NUTRITION [Suspect]
     Indication: DRUG USE FOR UNKNOWN INDICATION
     Route: 042
     Dates: end: 20071209
  7. POLARAMINE                         /00043702/ [Suspect]
     Indication: DRUG USE FOR UNKNOWN INDICATION
     Route: 048
     Dates: end: 20071210
  8. TRIFLUCAN [Suspect]
     Indication: DRUG USE FOR UNKNOWN INDICATION
     Route: 048
     Dates: end: 20071210
  9. LIORESAL [Suspect]
     Indication: DRUG USE FOR UNKNOWN INDICATION
     Route: 048
     Dates: end: 20071210
  10. SERESTA [Suspect]
     Indication: DRUG USE FOR UNKNOWN INDICATION
     Route: 048
     Dates: end: 20071206
  11. DUPHALAC                           /00163401/ [Concomitant]
     Indication: DRUG USE FOR UNKNOWN INDICATION
  12. PERFALGAN [Concomitant]
     Indication: DRUG USE FOR UNKNOWN INDICATION

REACTIONS (3)
  - LEUKOPENIA [None]
  - NEUTROPENIA [None]
  - THROMBOCYTOPENIA [None]
